FAERS Safety Report 19358684 (Version 1)
Quarter: 2021Q2

REPORT INFORMATION
  Report Type: Spontaneous
  Country: NL (occurrence: NL)
  Receive Date: 20210602
  Receipt Date: 20210602
  Transmission Date: 20210717
  Serious: Yes (Other)
  Sender: FDA-Public Use
  Company Number: NL-MYLANLABS-2021M1031478

PATIENT
  Age: 62 Year
  Sex: Female

DRUGS (1)
  1. SERTRALINE [Suspect]
     Active Substance: SERTRALINE HYDROCHLORIDE
     Indication: STRESS
     Dosage: UNK
     Dates: start: 2005, end: 2019

REACTIONS (3)
  - Electric shock sensation [Recovering/Resolving]
  - Hallucination, auditory [Recovering/Resolving]
  - Chest discomfort [Recovering/Resolving]
